FAERS Safety Report 5726527-8 (Version None)
Quarter: 2008Q2

REPORT INFORMATION
  Report Type: 
  Country: None (occurrence: None)
  Receive Date: 20080502
  Receipt Date: 20080422
  Transmission Date: 20081010
  Serious: Yes (Hospitalization)
  Sender: FDA-Public Use
  Company Number: JP-SANOFI-SYNTHELABO-F01200800078

PATIENT
  Sex: Female

DRUGS (3)
  1. FK199B [Suspect]
     Indication: INSOMNIA
     Dosage: 6.25 MG
     Route: 048
     Dates: start: 20070807, end: 20071224
  2. INFLUENZA HA VACCINE [Concomitant]
     Indication: INFLUENZA IMMUNISATION
     Dosage: 0.5 ML
     Route: 058
     Dates: start: 20071205, end: 20071205
  3. SEROQUEL [Concomitant]
     Indication: SCHIZOPHRENIA
     Dosage: 150 MG
     Route: 048
     Dates: start: 20070612, end: 20071224

REACTIONS (1)
  - SCHIZOPHRENIA [None]
